FAERS Safety Report 16478269 (Version 1)
Quarter: 2019Q2

REPORT INFORMATION
  Report Type: Spontaneous
  Country: SE (occurrence: SE)
  Receive Date: 20190626
  Receipt Date: 20190626
  Transmission Date: 20190711
  Serious: Yes (Hospitalization)
  Sender: FDA-Public Use
  Company Number: SE-ASTRAZENECA-2019SE89493

PATIENT
  Sex: Female

DRUGS (8)
  1. ALIMEMAZINE [Suspect]
     Active Substance: TRIMEPRAZINE
     Dosage: 100.0MG UNKNOWN
     Route: 065
     Dates: start: 20190304, end: 20190304
  2. QUETIAPINE. [Suspect]
     Active Substance: QUETIAPINE
     Dosage: 2000.0MG UNKNOWN
     Route: 065
     Dates: start: 20190304, end: 20190304
  3. HYDROXYZINE [Suspect]
     Active Substance: HYDROXYZINE HYDROCHLORIDE
     Dosage: 625.0MG UNKNOWN
     Route: 065
     Dates: start: 20190304, end: 20190304
  4. NOZINAN [Suspect]
     Active Substance: LEVOMEPROMAZINE
     Dosage: 125.0MG UNKNOWN
     Route: 065
     Dates: start: 20190304, end: 20190304
  5. MORPHINE [Suspect]
     Active Substance: MORPHINE
     Dosage: 30.0MG UNKNOWN
     Route: 065
     Dates: start: 20190304, end: 20190304
  6. LERGIGAN (PROMETHAZINE HYDROCHLORIDE) [Suspect]
     Active Substance: PROMETHAZINE HYDROCHLORIDE
     Dosage: 125.0MG UNKNOWN
     Route: 065
     Dates: start: 20190304, end: 20190304
  7. STILNOCT [Suspect]
     Active Substance: ZOLPIDEM TARTRATE
     Dosage: 40.0MG UNKNOWN
     Route: 065
     Dates: start: 20190304, end: 20190304
  8. PROMETHAZINE [Suspect]
     Active Substance: PROMETHAZINE\PROMETHAZINE HYDROCHLORIDE
     Dosage: 750.0MG UNKNOWN
     Route: 048
     Dates: start: 20190304, end: 20190304

REACTIONS (3)
  - Intentional overdose [Unknown]
  - Intentional self-injury [Unknown]
  - Fatigue [Unknown]

NARRATIVE: CASE EVENT DATE: 20190304
